FAERS Safety Report 4406165-X (Version None)
Quarter: 2004Q3

REPORT INFORMATION
  Report Type: 
  Country: None (occurrence: None)
  Receive Date: 20040723
  Receipt Date: 20040503
  Transmission Date: 20050211
  Serious: No
  Sender: FDA-Public Use
  Company Number: US-GLAXOSMITHKLINE-A0509219A

PATIENT
  Age: 68 Year
  Sex: Female

DRUGS (7)
  1. AVANDIA [Suspect]
     Dosage: 2MG PER DAY
     Route: 048
  2. SYNTHROID [Concomitant]
  3. ATROVENT [Concomitant]
  4. FLOVENT [Concomitant]
  5. PROVENTIL [Concomitant]
  6. LIPITOR [Concomitant]
  7. MICARDIS HCT [Concomitant]

REACTIONS (2)
  - HOARSENESS [None]
  - WEIGHT INCREASED [None]
